FAERS Safety Report 16269004 (Version 1)
Quarter: 2019Q2

REPORT INFORMATION
  Report Type: Spontaneous
  Country: US (occurrence: US)
  Receive Date: 20190503
  Receipt Date: 20190503
  Transmission Date: 20190711
  Serious: Yes (Other)
  Sender: FDA-Public Use
  Company Number: US-INCYTE CORPORATION-2019IN003500

PATIENT

DRUGS (1)
  1. JAKAFI [Suspect]
     Active Substance: RUXOLITINIB
     Indication: POLYCYTHAEMIA
     Dosage: 10 MG, BID
     Route: 048
     Dates: start: 20180401

REACTIONS (9)
  - Macrocytosis [Unknown]
  - Chronic kidney disease [Unknown]
  - Abdominal pain upper [Unknown]
  - Thrombocytosis [Unknown]
  - Hiatus hernia [Unknown]
  - Fatigue [Unknown]
  - Anaemia [Unknown]
  - Gastric ulcer [Unknown]
  - Reticulocytosis [Unknown]

NARRATIVE: CASE EVENT DATE: 20190103
